FAERS Safety Report 26031718 (Version 1)
Quarter: 2025Q4

REPORT INFORMATION
  Report Type: Spontaneous
  Country: EU (occurrence: EU)
  Receive Date: 20251112
  Receipt Date: 20251112
  Transmission Date: 20260119
  Serious: Yes (Hospitalization)
  Sender: TEVA
  Company Number: None

PATIENT
  Age: 41 Year
  Sex: Female
  Weight: 73 kg

DRUGS (5)
  1. PACLITAXEL [Suspect]
     Active Substance: PACLITAXEL
     Indication: Ovarian cancer
     Dosage: THERAPY ONGOING
     Route: 042
     Dates: start: 20201215
  2. CLEMASTINE [Concomitant]
     Active Substance: CLEMASTINE
     Indication: Ovarian cancer
     Dosage: THERAPY ONGOING
     Route: 042
     Dates: start: 20201215
  3. CARBOPLATIN [Concomitant]
     Active Substance: CARBOPLATIN
     Indication: Ovarian cancer
     Dosage: THERAPY ONGOING
     Route: 042
     Dates: start: 20201215
  4. DEXAMETHASONE PHOSPHATE SF [Concomitant]
     Indication: Ovarian cancer
     Dosage: THERAPY ONGOING
     Route: 042
     Dates: start: 20201215
  5. ONDANSETRON [Concomitant]
     Active Substance: ONDANSETRON
     Indication: Ovarian cancer
     Dosage: THERAPY ONGOING
     Route: 042
     Dates: start: 20201215

REACTIONS (2)
  - Chest pain [Recovered/Resolved]
  - Feeling hot [Recovered/Resolved]

NARRATIVE: CASE EVENT DATE: 20210226
